FAERS Safety Report 4991227-9 (Version None)
Quarter: 2006Q2

REPORT INFORMATION
  Report Type: 
  Country: None (occurrence: None)
  Receive Date: 20060427
  Receipt Date: 20060419
  Transmission Date: 20061013
  Serious: Yes (Hospitalization)
  Sender: FDA-Public Use
  Company Number: 2005160034

PATIENT
  Age: 44 Year
  Sex: Female
  Weight: 70 kg

DRUGS (11)
  1. LYRICA [Suspect]
     Indication: POLYNEUROPATHY
     Dosage: 600 MG (300 MG, 2 IN 1 D), ORAL
     Route: 048
     Dates: start: 20040921
  2. ZOCOR [Concomitant]
  3. NORVASC [Concomitant]
  4. ACERBON (LISINOPRIL) [Concomitant]
  5. OXYCODONE HCL [Concomitant]
  6. ROHYPNOL (FLUNITRAZEPAM) [Concomitant]
  7. IBUPROFEN [Concomitant]
  8. BACLOFEN [Concomitant]
  9. RAMIPRIL [Concomitant]
  10. AMITRIPTYLINE HCL [Concomitant]
  11. ROCEPHIN [Concomitant]

REACTIONS (2)
  - ENCEPHALOPATHY [None]
  - PSYCHOTIC DISORDER [None]
